FAERS Safety Report 11534558 (Version 1)
Quarter: 2015Q3

REPORT INFORMATION
  Report Type: Spontaneous
  Country: US (occurrence: US)
  Receive Date: 20150903
  Receipt Date: 20150903
  Transmission Date: 20151125
  Serious: No
  Sender: FDA-Public Use
  Company Number: US-ELI_LILLY_AND_COMPANY-US201101001640

PATIENT
  Sex: Female

DRUGS (5)
  1. HUMALOG [Suspect]
     Active Substance: INSULIN LISPRO
     Indication: DIABETES MELLITUS
     Dosage: 20 U, EACH MORNING
     Dates: start: 2007
  2. HUMALOG MIX75/25 [Suspect]
     Active Substance: INSULIN LISPRO
     Indication: DIABETES MELLITUS
  3. HUMALOG [Suspect]
     Active Substance: INSULIN LISPRO
     Dosage: 25 U, EACH EVENING
     Dates: start: 2007
  4. HUMALOG [Suspect]
     Active Substance: INSULIN LISPRO
     Dosage: 30 U, DAILY (1/D)
     Dates: start: 2007
  5. ASPIRIN. [Concomitant]
     Active Substance: ASPIRIN

REACTIONS (1)
  - Intercepted drug dispensing error [Unknown]

NARRATIVE: CASE EVENT DATE: 20110105
